FAERS Safety Report 6853853-1 (Version None)
Quarter: 2010Q3

REPORT INFORMATION
  Report Type: 
  Country: None (occurrence: None)
  Receive Date: 20100717
  Receipt Date: 20071224
  Transmission Date: 20110219
  Serious: No
  Sender: FDA-Public Use
  Company Number: US-PFIZER INC-2007108244

PATIENT
  Sex: Male
  Weight: 101.81 kg

DRUGS (3)
  1. CHANTIX [Suspect]
     Indication: SMOKING CESSATION THERAPY
     Dates: start: 20071217
  2. LIBRIUM [Concomitant]
  3. TRAZODONE HYDROCHLORIDE [Concomitant]

REACTIONS (6)
  - ABNORMAL DREAMS [None]
  - DIZZINESS [None]
  - HEADACHE [None]
  - HYPERHIDROSIS [None]
  - MEDICATION ERROR [None]
  - TOBACCO USER [None]
